FAERS Safety Report 16747678 (Version 5)
Quarter: 2020Q1

REPORT INFORMATION
  Report Type: Report from Study
  Country: JP (occurrence: JP)
  Receive Date: 20190827
  Receipt Date: 20200212
  Transmission Date: 20200409
  Serious: Yes (Death, Hospitalization, Other)
  Sender: FDA-Public Use
  Company Number: JP-ASTRAZENECA-2019SE81863

PATIENT
  Age: 71 Year
  Sex: Male
  Weight: 60 kg

DRUGS (6)
  1. JANUVIA [Concomitant]
     Active Substance: SITAGLIPTIN PHOSPHATE
     Route: 048
     Dates: end: 20190820
  2. AMBROXOL HYDROCHLORIDE [Concomitant]
     Active Substance: AMBROXOL HYDROCHLORIDE
     Indication: NON-SMALL CELL LUNG CANCER
     Route: 048
     Dates: end: 20190820
  3. MEDICON [Concomitant]
     Active Substance: DEXTROMETHORPHAN HYDROBROMIDE
     Indication: NON-SMALL CELL LUNG CANCER
     Route: 048
     Dates: end: 20190820
  4. RADIATION THERAPY [Suspect]
     Active Substance: RADIATION THERAPY
     Route: 065
  5. IMFINZI [Suspect]
     Active Substance: DURVALUMAB
     Indication: NON-SMALL CELL LUNG CANCER
     Route: 042
     Dates: start: 20190510, end: 20190510
  6. LANSOPRAZOLE. [Concomitant]
     Active Substance: LANSOPRAZOLE
     Indication: NON-SMALL CELL LUNG CANCER
     Route: 048
     Dates: start: 20190317, end: 20190820

REACTIONS (6)
  - Bronchial obstruction [Unknown]
  - Cardiac arrest [Fatal]
  - Radiation pneumonitis [Recovering/Resolving]
  - Septic shock [Fatal]
  - Pneumonia bacterial [Recovering/Resolving]
  - Urinary tract infection [Fatal]

NARRATIVE: CASE EVENT DATE: 2019
